FAERS Safety Report 5381480-4 (Version None)
Quarter: 2007Q3

REPORT INFORMATION
  Report Type: 
  Country: None (occurrence: None)
  Receive Date: 20070705
  Receipt Date: 20070705
  Transmission Date: 20080115
  Serious: No
  Sender: FDA-Public Use
  Company Number: None

PATIENT
  Sex: Female
  Weight: 62 kg

DRUGS (1)
  1. VANCOMYCIN [Suspect]
     Indication: CELLULITIS
     Dosage: 826MG
     Dates: start: 20070702

REACTIONS (2)
  - INFUSION SITE REACTION [None]
  - INJECTION SITE REACTION [None]
